FAERS Safety Report 5082290-8 (Version None)
Quarter: 2006Q3

REPORT INFORMATION
  Report Type: 
  Country: None (occurrence: None)
  Receive Date: 20060814
  Receipt Date: 20060810
  Transmission Date: 20061208
  Serious: Yes (Hospitalization, Disabling)
  Sender: FDA-Public Use
  Company Number: HQWYE623411APR03

PATIENT
  Age: 41 Year
  Sex: Female

DRUGS (1)
  1. DIMETAPP [Suspect]
     Dosage: ORAL
     Route: 048
     Dates: end: 20000331

REACTIONS (3)
  - CEREBRAL HAEMORRHAGE [None]
  - PARALYSIS [None]
  - TRAUMATIC BRAIN INJURY [None]
